FAERS Safety Report 7601802-0 (Version None)
Quarter: 2011Q3

REPORT INFORMATION
  Report Type: 
  Country: None (occurrence: None)
  Receive Date: 20110711
  Receipt Date: 20110629
  Transmission Date: 20111222
  Serious: Yes (Hospitalization, Other)
  Sender: FDA-Public Use
  Company Number: FR-VERTEX PHARMACEUTICALS INC.-AE-2011-000300

PATIENT
  Sex: Female
  Weight: 91 kg

DRUGS (7)
  1. PEGINTERFERON ALFA-2A [Concomitant]
     Indication: HEPATITIS C
     Route: 058
     Dates: start: 20110221
  2. TOCO [Concomitant]
     Indication: INSULIN RESISTANCE
     Route: 048
     Dates: start: 20090913
  3. LOGROTON [Concomitant]
     Indication: HYPERTENSION
     Route: 048
     Dates: start: 20080218
  4. NEORECORMON [Concomitant]
     Indication: ANAEMIA
     Dates: start: 20110419
  5. RIBAVIRIN [Concomitant]
     Indication: HEPATITIS C
     Route: 048
     Dates: start: 20110221
  6. DEXERYL [Concomitant]
     Indication: PROPHYLAXIS
     Route: 003
     Dates: start: 20110221
  7. VX-950 [Suspect]
     Indication: HEPATITIS C
     Route: 048
     Dates: start: 20110221, end: 20110513

REACTIONS (4)
  - ASTHENIA [None]
  - ANAEMIA [None]
  - RASH [None]
  - ACTIVITIES OF DAILY LIVING IMPAIRED [None]
